FAERS Safety Report 19358675 (Version 3)
Quarter: 2021Q2

REPORT INFORMATION
  Report Type: Other
  Country: EG (occurrence: EG)
  Receive Date: 20210602
  Receipt Date: 20210626
  Transmission Date: 20210717
  Serious: Yes (Other)
  Sender: FDA-Public Use
  Company Number: EG-ROCHE-2841292

PATIENT
  Age: 36 Year
  Sex: Female

DRUGS (6)
  1. OCREVUS [Suspect]
     Active Substance: OCRELIZUMAB
     Indication: MULTIPLE SCLEROSIS
     Route: 042
     Dates: start: 20200601
  2. OCREVUS [Suspect]
     Active Substance: OCRELIZUMAB
     Route: 042
     Dates: start: 20200514
  3. ONE ALPHA [Concomitant]
     Active Substance: ALFACALCIDOL
     Route: 048
     Dates: start: 202005
  4. MILGA [Concomitant]
     Active Substance: BENFOTIAMINE\CYANOCOBALAMIN\PYRIDOXINE HYDROCHLORIDE
     Route: 048
     Dates: start: 202005
  5. GAPTIN [Concomitant]
     Route: 048
     Dates: start: 202005
  6. OMEGA 3 PLUS [FISH OIL] [Concomitant]
     Route: 048
     Dates: start: 202005

REACTIONS (1)
  - Multiple sclerosis [Not Recovered/Not Resolved]

NARRATIVE: CASE EVENT DATE: 20210322
